FAERS Safety Report 9257838 (Version 1)
Quarter: 2013Q2

REPORT INFORMATION
  Report Type: Spontaneous
  Country: US (occurrence: US)
  Receive Date: 20130426
  Receipt Date: 20130426
  Transmission Date: 20140414
  Serious: No
  Sender: FDA-Public Use
  Company Number: US-GLAXOSMITHKLINE-A1002333A

PATIENT
  Age: 61 Year
  Sex: Female
  Weight: 46 kg

DRUGS (3)
  1. ONDANSETRON [Suspect]
     Indication: PRODUCT USED FOR UNKNOWN INDICATION
  2. VICODIN [Suspect]
     Indication: PRODUCT USED FOR UNKNOWN INDICATION
  3. HYCAMTIN [Suspect]
     Route: 048

REACTIONS (2)
  - Headache [Recovering/Resolving]
  - Nausea [Unknown]
